FAERS Safety Report 7267391-8 (Version None)
Quarter: 2011Q1

REPORT INFORMATION
  Report Type: 
  Country: None (occurrence: None)
  Receive Date: 20110201
  Receipt Date: 20100922
  Transmission Date: 20110831
  Serious: Yes (Other)
  Sender: FDA-Public Use
  Company Number: A0882652A

PATIENT

DRUGS (2)
  1. ARIXTRA [Suspect]
  2. UNKNOWN [Concomitant]

REACTIONS (1)
  - HAEMORRHAGE [None]
